FAERS Safety Report 18429324 (Version 2)
Quarter: 2021Q1

REPORT INFORMATION
  Report Type: Spontaneous
  Country: US (occurrence: US)
  Receive Date: 20201026
  Receipt Date: 20210202
  Transmission Date: 20210419
  Serious: No
  Sender: FDA-Public Use
  Company Number: US-PFIZER INC-2020414194

PATIENT
  Age: 74 Year
  Sex: Female

DRUGS (1)
  1. IBRANCE [Suspect]
     Active Substance: PALBOCICLIB
     Dosage: 100 MG
     Dates: start: 20200427

REACTIONS (4)
  - Fatigue [Unknown]
  - Pruritus [Unknown]
  - Epistaxis [Unknown]
  - Hot flush [Unknown]

NARRATIVE: CASE EVENT DATE: 2020
